FAERS Safety Report 9114795 (Version 1)
Quarter: 2013Q1

REPORT INFORMATION
  Report Type: Spontaneous
  Country: US (occurrence: None)
  Receive Date: 20130128
  Receipt Date: 20130128
  Transmission Date: 20140127
  Serious: Yes (Death, Hospitalization)
  Sender: FDA-Public Use
  Company Number: PL-INDICUS PHARMA-000049

PATIENT
  Age: 55 Year
  Sex: Female

DRUGS (1)
  1. METFORMIN HYDROCHLORIDE [Suspect]
     Indication: TYPE 2 DIABETES MELLITUS

REACTIONS (6)
  - Lactic acidosis [None]
  - Bronchitis bacterial [None]
  - Emphysema [None]
  - Cachexia [None]
  - Blood creatinine increased [None]
  - Blood glucose increased [None]
